FAERS Safety Report 17370067 (Version 2)
Quarter: 2020Q1

REPORT INFORMATION
  Report Type: Spontaneous
  Country: CH (occurrence: CH)
  Receive Date: 20200205
  Receipt Date: 20200207
  Transmission Date: 20200409
  Serious: Yes (Hospitalization)
  Sender: FDA-Public Use
  Company Number: CH-ASTRAZENECA-2020SE14125

PATIENT
  Age: 10922 Day
  Sex: Male

DRUGS (4)
  1. SEROQUEL [Suspect]
     Active Substance: QUETIAPINE FUMARATE
     Dosage: 250.0MG UNKNOWN
     Route: 048
     Dates: start: 20191205, end: 20191205
  2. RIVOTRIL [Suspect]
     Active Substance: CLONAZEPAM
     Dosage: 2.0MG UNKNOWN
     Route: 048
     Dates: start: 20191205, end: 20191205
  3. COCAINE [Concomitant]
     Active Substance: COCAINE
  4. DAFALGAN [Suspect]
     Active Substance: ACETAMINOPHEN
     Dosage: 16.0G UNKNOWN
     Route: 048
     Dates: start: 20191205, end: 20191205

REACTIONS (3)
  - Intentional product misuse [Recovered/Resolved]
  - Suicide attempt [Recovered/Resolved]
  - Somnolence [Recovered/Resolved]

NARRATIVE: CASE EVENT DATE: 20191205
